FAERS Safety Report 23639653 (Version 3)
Quarter: 2024Q4

REPORT INFORMATION
  Report Type: Spontaneous
  Country: CA (occurrence: CA)
  Receive Date: 20240316
  Receipt Date: 20241125
  Transmission Date: 20250114
  Serious: Yes (Other)
  Sender: CELLTRION
  Company Number: CA-CELLTRION INC.-2024CA006496

PATIENT

DRUGS (5)
  1. INFLECTRA [Suspect]
     Active Substance: INFLIXIMAB-DYYB
     Indication: Crohn^s disease
     Dosage: 5 MG/KG, INDUCTION DOSES AT WEEKS 0,2,6 THEN Q 8 WEEKS
     Route: 042
     Dates: start: 20210709
  2. INFLECTRA [Suspect]
     Active Substance: INFLIXIMAB-DYYB
     Dosage: 5 MG/KG, INDUCTION DOSES AT WEEKS 0,2,6 THEN Q 8 WEEKS
     Route: 042
     Dates: start: 20230220
  3. INFLECTRA [Suspect]
     Active Substance: INFLIXIMAB-DYYB
     Dosage: 5 MG/KG, REINDUCTION WEEK 0, 2, 6 THEN EVERY 8 WEEKS
     Route: 042
     Dates: start: 20230811
  4. INFLECTRA [Suspect]
     Active Substance: INFLIXIMAB-DYYB
     Dosage: 5 MG/KG, REINDUCTION WEEK 0, 2, 6 THEN EVERY 8 WEEKS
     Route: 042
     Dates: start: 20240112
  5. INFLECTRA [Suspect]
     Active Substance: INFLIXIMAB-DYYB
     Dosage: 5 MG/KG, REINDUCTION WEEK 0, 2, 6 THEN EVERY 8 WEEKS
     Dates: start: 20240308

REACTIONS (1)
  - Abortion spontaneous [Not Recovered/Not Resolved]

NARRATIVE: CASE EVENT DATE: 20240101
